FAERS Safety Report 16096700 (Version 1)
Quarter: 2019Q1

REPORT INFORMATION
  Report Type: Spontaneous
  Country: US (occurrence: US)
  Receive Date: 20190320
  Receipt Date: 20190320
  Transmission Date: 20190418
  Serious: Yes (Other)
  Sender: FDA-Public Use
  Company Number: US-HYGENIC CORPORATION-2064315

PATIENT
  Sex: Male

DRUGS (1)
  1. BIOFREEZE [Suspect]
     Active Substance: MENTHOL
     Indication: PAIN
     Route: 061

REACTIONS (1)
  - Blister [Recovering/Resolving]

NARRATIVE: CASE EVENT DATE: 20190124
